FAERS Safety Report 9473319 (Version 2)
Quarter: 2013Q3

REPORT INFORMATION
  Report Type: Spontaneous
  Country: US (occurrence: US)
  Receive Date: 20130823
  Receipt Date: 20130823
  Transmission Date: 20140515
  Serious: No
  Sender: FDA-Public Use
  Company Number: US-GALDERMA-US-GDP-12413895

PATIENT
  Age: 63 Year
  Sex: Female
  Weight: 99 kg

DRUGS (16)
  1. METROGEL [Suspect]
     Indication: ROSACEA
     Route: 061
     Dates: start: 2010, end: 2010
  2. CLENIA CREAM [Concomitant]
     Indication: ROSACEA
     Route: 061
     Dates: start: 2010
  3. BUTALBITAL [Concomitant]
     Indication: MIGRAINE
     Route: 048
  4. FLONASE [Concomitant]
     Indication: MULTIPLE ALLERGIES
     Route: 045
  5. LASIX [Concomitant]
     Indication: JOINT SWELLING
     Route: 048
  6. CORGARD [Concomitant]
     Indication: HYPERTENSION
     Route: 048
  7. NEXIUM [Concomitant]
     Indication: GASTROOESOPHAGEAL REFLUX DISEASE
     Route: 048
  8. RESTASIS [Concomitant]
     Indication: DRY EYE
     Route: 047
  9. TEGRETOL [Concomitant]
     Indication: CONVULSION
     Route: 048
  10. CATAPRES [Concomitant]
     Indication: HYPERTENSION
     Route: 048
  11. SIMVASTATIN [Concomitant]
     Indication: HYPERCHOLESTEROLAEMIA
     Route: 048
  12. LISINOPRIL [Concomitant]
     Indication: HYPERTENSION
     Route: 048
  13. AMBIEN [Concomitant]
     Indication: SLEEP DISORDER
  14. AMITRIPTYLINE [Concomitant]
     Indication: SLEEP DISORDER
     Route: 048
  15. PLAVIX [Concomitant]
     Indication: PROPHYLAXIS
     Route: 048
  16. ASPIRIN [Concomitant]
     Indication: PROPHYLAXIS
     Route: 048

REACTIONS (3)
  - Dry skin [Recovered/Resolved]
  - Erythema [Recovered/Resolved]
  - Drug ineffective [None]
